FAERS Safety Report 18116278 (Version 1)
Quarter: 2020Q3

REPORT INFORMATION
  Report Type: Report from Study
  Country: NL (occurrence: NL)
  Receive Date: 20200805
  Receipt Date: 20200805
  Transmission Date: 20201103
  Serious: Yes (Hospitalization)
  Sender: FDA-Public Use
  Company Number: NL-PURDUE-USA-2020-0160505

PATIENT
  Age: 74 Year
  Sex: Male

DRUGS (2)
  1. OXYCODONE HYDROCHLORIDE (SIMILAR TO NDA 22?272) [Suspect]
     Active Substance: OXYCODONE HYDROCHLORIDE
     Indication: PAIN
     Dosage: UNK
     Route: 065
     Dates: start: 20161115
  2. LONQUEX [Suspect]
     Active Substance: LIPEGFILGRASTIM
     Indication: PRODUCT USED FOR UNKNOWN INDICATION
     Dosage: 6 MG CYCLE
     Route: 058
     Dates: start: 20161111

REACTIONS (5)
  - Pyrexia [Recovered/Resolved]
  - Bone pain [Recovered/Resolved]
  - Respiratory tract infection [Recovered/Resolved]
  - Vomiting [Recovered/Resolved]
  - Urinary tract infection [Recovered/Resolved]

NARRATIVE: CASE EVENT DATE: 20161115
